FAERS Safety Report 11493093 (Version 1)
Quarter: 2015Q3

REPORT INFORMATION
  Report Type: Spontaneous
  Country: US (occurrence: None)
  Receive Date: 20150910
  Receipt Date: 20150910
  Transmission Date: 20151125
  Serious: Yes (Life-Threatening, Hospitalization, Disabling)
  Sender: FDA-Public Use
  Company Number: None

PATIENT
  Age: 60 Year
  Sex: Female
  Weight: 94.35 kg

DRUGS (13)
  1. LANTUS SOLOSTAR [Suspect]
     Active Substance: INSULIN GLARGINE
     Indication: BLOOD GLUCOSE INCREASED
     Dosage: GIVEN INTO/UNDER THE SKIN
     Dates: start: 20100501, end: 20150909
  2. ASPIRIN. [Concomitant]
     Active Substance: ASPIRIN
  3. GLIPIZIDE. [Concomitant]
     Active Substance: GLIPIZIDE
  4. LANTUS [Concomitant]
     Active Substance: INSULIN GLARGINE
  5. GABAPENTIN. [Concomitant]
     Active Substance: GABAPENTIN
  6. GEODON [Concomitant]
     Active Substance: ZIPRASIDONE HYDROCHLORIDE\ZIPRASIDONE MESYLATE
  7. EFFEXOR XR [Concomitant]
     Active Substance: VENLAFAXINE HYDROCHLORIDE
  8. ATORVASTATIN [Concomitant]
     Active Substance: ATORVASTATIN
  9. SYNTHROID [Concomitant]
     Active Substance: LEVOTHYROXINE SODIUM
  10. ALPRAZOLAM. [Concomitant]
     Active Substance: ALPRAZOLAM
  11. IC METFORMIN HCL ER 500 MG TEVA USA [Suspect]
     Active Substance: METFORMIN HYDROCHLORIDE
     Indication: DIABETES MELLITUS MANAGEMENT
     Dosage: 2 PILLS TWICE DAILY
     Route: 048
     Dates: start: 20150309, end: 20150618
  12. NOVOLOG [Concomitant]
     Active Substance: INSULIN ASPART
  13. BISOPROLOL [Concomitant]
     Active Substance: BISOPROLOL

REACTIONS (6)
  - Product solubility abnormal [None]
  - Liquid product physical issue [None]
  - White blood cell count increased [None]
  - Cerebrovascular accident [None]
  - Obstruction [None]
  - Constipation [None]

NARRATIVE: CASE EVENT DATE: 20150811
